FAERS Safety Report 4601118-0 (Version None)
Quarter: 2005Q1

REPORT INFORMATION
  Report Type: 
  Country: None (occurrence: None)
  Receive Date: 20050307
  Receipt Date: 20050307
  Transmission Date: 20050727
  Serious: Yes (Other)
  Sender: FDA-Public Use
  Company Number: None

PATIENT
  Sex: Female
  Weight: 63.5036 kg

DRUGS (2)
  1. FIORICET [Suspect]
     Indication: HEADACHE
     Dosage: 1 3 X DAY
  2. BUTALBITAL ACETAMINOPHEN AND CAFFEINE [Suspect]
     Dosage: 1 X 3 A DAY

REACTIONS (3)
  - DRUG EFFECT DECREASED [None]
  - PAIN [None]
  - PHARMACEUTICAL PRODUCT COMPLAINT [None]
